FAERS Safety Report 5364669-X (Version None)
Quarter: 2007Q2

REPORT INFORMATION
  Report Type: 
  Country: None (occurrence: None)
  Receive Date: 20070621
  Receipt Date: 20070614
  Transmission Date: 20071010
  Serious: Yes (Other)
  Sender: FDA-Public Use
  Company Number: PHEH2007US08785

PATIENT
  Age: 51 Year
  Sex: Female

DRUGS (3)
  1. LOTREL [Suspect]
     Indication: HYPERTENSION
     Dosage: 10/20 MG, QD
     Route: 048
     Dates: start: 20070517, end: 20070522
  2. LOTREL [Suspect]
     Dosage: 5/20 MG, QD
     Route: 048
     Dates: start: 20070523, end: 20070609
  3. BENICAR [Concomitant]
     Indication: HYPERTENSION
     Dates: start: 20070515, end: 20070516

REACTIONS (7)
  - DIZZINESS [None]
  - EATING DISORDER [None]
  - HEADACHE [None]
  - HYPOTENSION [None]
  - LOSS OF CONSCIOUSNESS [None]
  - NAUSEA [None]
  - VOMITING [None]
